FAERS Safety Report 7768876-8 (Version None)
Quarter: 2011Q3

REPORT INFORMATION
  Report Type: 
  Country: None (occurrence: None)
  Receive Date: 20110922
  Receipt Date: 20110505
  Transmission Date: 20111222
  Serious: No
  Sender: FDA-Public Use
  Company Number: US-ASTRAZENECA-2011SE27008

PATIENT
  Age: 51 Year
  Sex: Female

DRUGS (13)
  1. IBUPROFEN [Concomitant]
  2. SYMBICORT [Concomitant]
  3. TRILIPIX [Concomitant]
  4. CRESTOR [Concomitant]
  5. SEROQUEL XR [Suspect]
     Route: 048
  6. ZOLOFT [Concomitant]
  7. CYCLOPHOSPHAMIDE [Concomitant]
  8. VENTOLIN HFA [Concomitant]
  9. DURAGESIC-100 [Concomitant]
  10. DOCUSATE SODIUM [Concomitant]
  11. FIBERCON [Concomitant]
  12. OXYCODONE HCL AND ACETAMINOPHEN [Concomitant]
  13. ALPRAZOLAM [Concomitant]

REACTIONS (3)
  - PANIC ATTACK [None]
  - SCHIZOPHRENIA [None]
  - DRUG DOSE OMISSION [None]
